FAERS Safety Report 5459122-9 (Version None)
Quarter: 2007Q3

REPORT INFORMATION
  Report Type: 
  Country: None (occurrence: None)
  Receive Date: 20070919
  Receipt Date: 20070910
  Transmission Date: 20080115
  Serious: Yes (Other)
  Sender: FDA-Public Use
  Company Number: CA-ELI_LILLY_AND_COMPANY-CA200705004397

PATIENT
  Age: 78 Year
  Sex: Male

DRUGS (9)
  1. RAMIPRIL [Concomitant]
  2. DILTIAZEM [Concomitant]
  3. HYDROCHLOROTHIAZIDE [Concomitant]
  4. FORTEO [Suspect]
     Indication: OSTEOPOROSIS
     Dosage: 20 UG, DAILY (1/D)
     Route: 058
     Dates: start: 20070110
  5. COUMADIN [Concomitant]
  6. ASPIRIN [Concomitant]
     Dosage: 81 MG, UNK
  7. CALCIUM [Concomitant]
  8. VITAMIN D [Concomitant]
  9. MULTI-VITAMIN [Concomitant]

REACTIONS (8)
  - ASTHENIA [None]
  - BALANCE DISORDER [None]
  - GENERAL PHYSICAL HEALTH DETERIORATION [None]
  - LOSS OF CONSCIOUSNESS [None]
  - NAUSEA [None]
  - PSYCHOMOTOR SKILLS IMPAIRED [None]
  - SPINAL FUSION ACQUIRED [None]
  - SYNCOPE [None]
